FAERS Safety Report 5642830-4 (Version None)
Quarter: 2008Q1

REPORT INFORMATION
  Report Type: 
  Country: None (occurrence: None)
  Receive Date: 20080228
  Receipt Date: 20080221
  Transmission Date: 20080703
  Serious: Yes (Death)
  Sender: FDA-Public Use
  Company Number: US-GENENTECH-254490

PATIENT
  Sex: Female

DRUGS (10)
  1. RITUXAN [Suspect]
     Indication: SYSTEMIC LUPUS ERYTHEMATOSUS
     Dosage: 188 MG/M2, 1/WEEK
  2. RITUXAN [Suspect]
     Indication: NEPHRITIS
     Dosage: 375 MG/M2, 1/WEEK
  3. RITUXAN [Suspect]
     Indication: SEROSITIS
  4. DIPHENHYDRAMINE HCL [Concomitant]
     Indication: PREMEDICATION
  5. ACETAMINOPHEN [Concomitant]
     Indication: PREMEDICATION
  6. HYDROCORTISONE [Concomitant]
     Indication: PREMEDICATION
     Route: 042
  7. CORTICOSTEROIDS (UNK INGREDIENTS) [Concomitant]
     Indication: DRUG USE FOR UNKNOWN INDICATION
  8. HYDROXYCHLOROQUINE SULFATE [Concomitant]
     Indication: DRUG USE FOR UNKNOWN INDICATION
  9. MYCOPHENOLATE MOFETIL [Concomitant]
     Indication: DRUG USE FOR UNKNOWN INDICATION
  10. AZATHIOPRINE [Concomitant]
     Indication: DRUG USE FOR UNKNOWN INDICATION

REACTIONS (1)
  - ENDOCARDITIS [None]
